FAERS Safety Report 25412237 (Version 3)
Quarter: 2025Q2

REPORT INFORMATION
  Report Type: Spontaneous
  Country: US (occurrence: US)
  Receive Date: 20250609
  Receipt Date: 20250616
  Transmission Date: 20250717
  Serious: Yes (Other)
  Sender: PFIZER
  Company Number: US-PFIZER INC-202500116671

PATIENT
  Age: 66 Year
  Sex: Male
  Weight: 70.31 kg

DRUGS (1)
  1. XELJANZ [Suspect]
     Active Substance: TOFACITINIB CITRATE
     Indication: VEXAS syndrome
     Dosage: 5 MG, 2X/DAY (ONCE MORNING ONCE EVENING)
     Dates: start: 20250523, end: 20250605

REACTIONS (5)
  - Immunosuppression [Unknown]
  - Oesophageal oedema [Not Recovered/Not Resolved]
  - Dysphagia [Not Recovered/Not Resolved]
  - Candida infection [Unknown]
  - Off label use [Unknown]

NARRATIVE: CASE EVENT DATE: 20250523
